FAERS Safety Report 6367877-4 (Version None)
Quarter: 2009Q3

REPORT INFORMATION
  Report Type: 
  Country: None (occurrence: None)
  Receive Date: 20090922
  Receipt Date: 20070706
  Transmission Date: 20100115
  Serious: Yes (Other)
  Sender: FDA-Public Use
  Company Number: US-ASTRAZENECA-2006UW24183

PATIENT
  Age: 20632 Day
  Sex: Male
  Weight: 116.6 kg

DRUGS (10)
  1. SEROQUEL [Suspect]
     Indication: SLEEP DISORDER
     Route: 048
     Dates: start: 20040805, end: 20060601
  2. SEROQUEL [Suspect]
     Indication: DEPRESSION
     Route: 048
     Dates: start: 20040805, end: 20060601
  3. SEROQUEL [Suspect]
     Dosage: 200 MG QHS TO 400 MG
     Route: 048
     Dates: start: 20041011
  4. SEROQUEL [Suspect]
     Dosage: 200 MG QHS TO 400 MG
     Route: 048
     Dates: start: 20041011
  5. GEODON [Concomitant]
     Dates: start: 20040805
  6. TOPAMAX [Concomitant]
     Dosage: 50 MG BID TO 75 MG BID
     Dates: start: 20041011
  7. AMBIEN [Concomitant]
     Indication: SLEEP DISORDER
     Route: 048
     Dates: start: 20030612
  8. ZOLOFT [Concomitant]
     Dosage: 50 MG QAM TO 100 MG QAM
     Route: 048
     Dates: start: 20030405
  9. ZYPREXA [Concomitant]
     Dosage: 5 MG QHS TO 10 MG HS
     Route: 048
     Dates: start: 20030405
  10. DEPAKOTE [Concomitant]
     Dates: start: 20030718

REACTIONS (5)
  - BLOOD CHOLESTEROL INCREASED [None]
  - BLOOD TRIGLYCERIDES INCREASED [None]
  - DIABETES MELLITUS [None]
  - HYPERGLYCAEMIA [None]
  - NEUROPATHY PERIPHERAL [None]
